FAERS Safety Report 7597309-X (Version None)
Quarter: 2011Q3

REPORT INFORMATION
  Report Type: 
  Country: None (occurrence: None)
  Receive Date: 20110708
  Receipt Date: 20110426
  Transmission Date: 20111222
  Serious: No
  Sender: FDA-Public Use
  Company Number: US-GLAXOSMITHKLINE-A0924587A

PATIENT
  Age: 79 Year
  Sex: Male

DRUGS (3)
  1. FLUTICASONE PROPIONATE [Concomitant]
  2. FOSAMAX [Concomitant]
  3. FLOVENT [Suspect]
     Indication: ASTHMA
     Route: 055
     Dates: start: 20100101

REACTIONS (6)
  - RASH [None]
  - SKIN IRRITATION [None]
  - PSYCHOMOTOR HYPERACTIVITY [None]
  - PERIORBITAL OEDEMA [None]
  - EYE SWELLING [None]
  - HYPERTENSION [None]
